FAERS Safety Report 6633823-9 (Version None)
Quarter: 2010Q1

REPORT INFORMATION
  Report Type: 
  Country: None (occurrence: None)
  Receive Date: 20100315
  Receipt Date: 20100302
  Transmission Date: 20100710
  Serious: Yes (Other)
  Sender: FDA-Public Use
  Company Number: FR-JNJFOC-20100301897

PATIENT
  Age: 26 Year
  Sex: Female

DRUGS (1)
  1. ACETAMINOPHEN AND CODEINE PHOSPHATE [Suspect]
     Indication: HEADACHE
     Route: 065

REACTIONS (4)
  - ADVERSE EVENT [None]
  - DRUG ABUSE [None]
  - DRUG DEPENDENCE [None]
  - INTENTIONAL OVERDOSE [None]
